FAERS Safety Report 13859760 (Version 1)
Quarter: 2017Q3

REPORT INFORMATION
  Report Type: Spontaneous
  Country: GB (occurrence: GB)
  Receive Date: 20170811
  Receipt Date: 20170811
  Transmission Date: 20171127
  Serious: Yes (Other)
  Sender: FDA-Public Use
  Company Number: GB-JNJFOC-20170807745

PATIENT
  Age: 65 Year
  Sex: Male

DRUGS (1)
  1. CANAGLIFLOZIN [Suspect]
     Active Substance: CANAGLIFLOZIN
     Indication: DIABETES MELLITUS
     Route: 048
     Dates: start: 20170228

REACTIONS (10)
  - Mouth ulceration [Unknown]
  - Depression [Unknown]
  - Panic attack [Unknown]
  - Abnormal dreams [Unknown]
  - Hallucination [Unknown]
  - Irritability [Unknown]
  - Anxiety [Unknown]
  - Joint swelling [Unknown]
  - Vision blurred [Unknown]
  - Urticaria [Unknown]
